FAERS Safety Report 8461459-6 (Version None)
Quarter: 2012Q2

REPORT INFORMATION
  Report Type: 
  Country: None (occurrence: None)
  Receive Date: 20120625
  Receipt Date: 20120619
  Transmission Date: 20120825
  Serious: Yes (Death, Hospitalization, Other)
  Sender: FDA-Public Use
  Company Number: US-ASTRAZENECA-2011SE41545

PATIENT
  Age: 61 Year
  Sex: Female

DRUGS (75)
  1. RANITIDINE [Concomitant]
     Dates: start: 20090401, end: 20110901
  2. LUSPIRONE HCL [Concomitant]
  3. PLAVIX [Concomitant]
     Indication: CARDIAC DISORDER
     Dosage: 1 PO Q DAY
     Route: 048
  4. AMIODARONE HCL [Concomitant]
  5. CLINDAMYCIN HCL [Concomitant]
  6. COREG [Concomitant]
     Dates: start: 20110112
  7. CENTRUM VITAMIN [Concomitant]
     Dates: start: 20070119
  8. NEXIUM [Suspect]
     Indication: ABDOMINAL PAIN UPPER
     Route: 048
  9. NEXIUM [Suspect]
     Route: 048
     Dates: start: 20030522
  10. HYZAAR [Concomitant]
     Dosage: 50-12.5MG
     Dates: start: 20030423
  11. XANAX [Concomitant]
     Dosage: 0.5 MG 1/2 PRN
     Dates: start: 20070119
  12. ALLOPREERINOL [Concomitant]
     Indication: GOUT
  13. ISOSORBIDE MONONITRATE [Concomitant]
  14. NITROGLYCERIN [Concomitant]
     Dosage: 0.4 MG PRN
     Dates: start: 20070119
  15. FUROSEMIDE [Concomitant]
  16. TEMAZEPAM [Concomitant]
  17. ASPIRIN [Concomitant]
     Dates: start: 20070119
  18. ZAROXOLYN [Concomitant]
     Dosage: 5 MG PRN
     Dates: start: 20070119
  19. UNICEF [Concomitant]
     Dosage: 1 BID
     Route: 048
  20. EVISSA [Concomitant]
  21. NEXIUM [Suspect]
     Indication: GASTROOESOPHAGEAL REFLUX DISEASE
     Route: 048
  22. XANAX [Concomitant]
     Dates: start: 20030620
  23. CEFPROZIL [Concomitant]
  24. SPIRONOLACTONE [Concomitant]
  25. AVANDIA [Concomitant]
     Dates: start: 20030620
  26. AVAPRO [Concomitant]
     Dates: start: 20110112
  27. ZAROXOLYN [Concomitant]
     Dates: start: 20030424
  28. NEXIUM [Suspect]
     Route: 048
     Dates: start: 20060104
  29. POTASSIUM CL [Concomitant]
  30. XANAX [Concomitant]
  31. RAZADYNE [Concomitant]
     Indication: MEMORY IMPAIRMENT
  32. WARFARIN SODIUM [Concomitant]
  33. PRAUASTATIN SODIUM [Concomitant]
  34. PROMETHAZINE [Concomitant]
  35. ASPIRIN [Concomitant]
     Dates: start: 20060104
  36. ZAROXOLYN [Concomitant]
  37. RAZADYNE [Concomitant]
     Dates: start: 20060104
  38. PREDNISONE TAB [Concomitant]
  39. DIOUAN [Concomitant]
  40. COZZAAR [Concomitant]
  41. LEVAQUIN [Concomitant]
     Dates: start: 20030606
  42. NEURONTIN [Concomitant]
     Dates: start: 20060104
  43. NEXIUM [Suspect]
     Route: 048
     Dates: start: 20030501, end: 20090401
  44. XANAX [Concomitant]
     Dosage: 5MG 1/2 TAB QPM
     Route: 048
     Dates: start: 20060104
  45. LOOASTATIN [Concomitant]
  46. EUISTA [Concomitant]
     Indication: MENOPAUSE
  47. NITROGLYCERIN [Concomitant]
     Indication: CARDIAC DISORDER
     Dates: start: 20030520
  48. AMBIEN [Concomitant]
     Indication: SLEEP DISORDER
  49. FLUTICASONE [Concomitant]
     Dosage: 50 MCG
  50. SPIRIUA [Concomitant]
     Dosage: 18 MCG
  51. ENALAPRIL MALEATE [Concomitant]
  52. AMITRIPTYLINE HCL [Concomitant]
  53. TORSEMIDE [Concomitant]
     Dates: start: 20070119
  54. NEXIUM [Suspect]
     Route: 048
     Dates: start: 20030501, end: 20090401
  55. NEXIUM [Suspect]
     Route: 048
     Dates: start: 20030522
  56. CARISOPRODOL [Concomitant]
  57. CARISOPRODOL [Concomitant]
     Dates: start: 20030620
  58. GLIMEPIRIDE [Concomitant]
  59. AZITHORMYCIN [Concomitant]
  60. SPIRONOLACTONE [Concomitant]
     Dates: start: 20030423
  61. HYDROCOONE/APAP [Concomitant]
     Indication: PAIN
     Dosage: 7.5/750
  62. ALLEGRA [Concomitant]
     Dates: start: 20110112
  63. DEMEDEX [Concomitant]
     Dosage: 2 PO Q AM
     Dates: start: 20060104
  64. NEXIUM [Suspect]
     Route: 048
     Dates: start: 20060104
  65. HYZAAR [Concomitant]
     Dosage: 50 / 12.5 MG QD
     Dates: start: 20060104
  66. LYRICA [Concomitant]
  67. PLAVIX [Concomitant]
     Indication: APOLIPOPROTEIN ABNORMAL
     Dosage: 1 PO Q DAY
     Route: 048
  68. CEFADROXIL [Concomitant]
  69. CORG [Concomitant]
  70. ALTACE [Concomitant]
  71. CELEBREX [Concomitant]
     Dates: start: 20030618
  72. ZOCOR [Concomitant]
     Dates: start: 20060104
  73. TOPROL-XL [Concomitant]
     Dates: start: 20060104
  74. COLCHICINE [Concomitant]
     Dosage: 0.6 MG PRN
     Dates: start: 20060104
  75. ZAROXOLYN [Concomitant]
     Dates: start: 20060104

REACTIONS (13)
  - RENAL FAILURE CHRONIC [None]
  - TYPE 1 DIABETES MELLITUS [None]
  - RIB FRACTURE [None]
  - ARTERIOSCLEROSIS CORONARY ARTERY [None]
  - LOWER LIMB FRACTURE [None]
  - FRACTURE [None]
  - CORONARY ARTERY DISEASE [None]
  - TYPE 2 DIABETES MELLITUS [None]
  - SUBENDOCARDIAL ISCHAEMIA [None]
  - ISCHAEMIC CARDIOMYOPATHY [None]
  - OSTEOPOROSIS [None]
  - UPPER LIMB FRACTURE [None]
  - CARDIAC FAILURE CONGESTIVE [None]
